FAERS Safety Report 6037925-X (Version None)
Quarter: 2009Q1

REPORT INFORMATION
  Report Type: 
  Country: None (occurrence: None)
  Receive Date: 20090113
  Receipt Date: 20090113
  Transmission Date: 20090719
  Serious: Yes (Life-Threatening)
  Sender: FDA-Public Use
  Company Number: None

PATIENT
  Sex: Female
  Weight: 54.4316 kg

DRUGS (13)
  1. GOODY'S POWDER BODY PAIN + ARTHRITIS FORMULATION GLAXOSMITHKLINE [Suspect]
     Indication: ARTHRITIS
     Dosage: 6-12 PACKS PER DAY PO
     Route: 048
  2. GOODY'S POWDER BODY PAIN + ARTHRITIS FORMULATION GLAXOSMITHKLINE [Suspect]
     Indication: BACK PAIN
     Dosage: 6-12 PACKS PER DAY PO
     Route: 048
  3. PLAVIX [Concomitant]
  4. PRISTIQ [Concomitant]
  5. ATENOLOL [Concomitant]
  6. VYTORIN [Concomitant]
  7. MEGACE [Concomitant]
  8. ADVAIR DISKUS 100/50 [Concomitant]
  9. XOPENEX [Concomitant]
  10. ASPIRIN [Concomitant]
  11. LEVAQUIN [Concomitant]
  12. LORTAB [Concomitant]
  13. PROTONIX [Concomitant]

REACTIONS (3)
  - DUODENAL ULCER PERFORATION [None]
  - INCORRECT DOSE ADMINISTERED [None]
  - SEPSIS [None]
